FAERS Safety Report 5421133-7 (Version None)
Quarter: 2007Q3

REPORT INFORMATION
  Report Type: 
  Country: None (occurrence: None)
  Receive Date: 20070817
  Receipt Date: 20070801
  Transmission Date: 20080115
  Serious: Yes (Hospitalization)
  Sender: FDA-Public Use
  Company Number: 2007BI014553

PATIENT
  Age: 61 Year
  Sex: Male

DRUGS (1)
  1. NATALIZUMAB [Suspect]
     Indication: MULTIPLE SCLEROSIS
     Dosage: 300 MG;QM;IV
     Route: 042
     Dates: start: 20061030, end: 20070101

REACTIONS (4)
  - MULTIPLE SCLEROSIS [None]
  - MUSCLE SPASTICITY [None]
  - NEUROGENIC BLADDER [None]
  - RASH [None]
